FAERS Safety Report 25889819 (Version 1)
Quarter: 2025Q4

REPORT INFORMATION
  Report Type: Report from Study
  Country: US (occurrence: US)
  Receive Date: 20251007
  Receipt Date: 20251007
  Transmission Date: 20260118
  Serious: Yes (Other)
  Sender: PFIZER
  Company Number: US-PFIZER INC-PV202500112528

PATIENT
  Age: 12 Month
  Sex: Male
  Weight: 9.265 kg

DRUGS (4)
  1. NURTEC ODT [Suspect]
     Active Substance: RIMEGEPANT SULFATE
     Indication: Migraine prophylaxis
     Dosage: 75 MG, EVERY OTHER DAY (QOD)
     Route: 050
     Dates: start: 2020
  2. RIZATRIPTAN [Suspect]
     Active Substance: RIZATRIPTAN
     Indication: Migraine prophylaxis
     Dosage: 10-20 MG, AS NEEDED (PRN)
     Route: 050
  3. TYLENOL [Suspect]
     Active Substance: ACETAMINOPHEN
     Indication: Migraine prophylaxis
     Dosage: 250-1000 MG, AS NEEDED (PRN)
     Route: 050
  4. BOTOX [Suspect]
     Active Substance: ONABOTULINUMTOXINA
     Indication: Migraine prophylaxis
     Dosage: UNK, EVERY 3 MONTHS
     Route: 050
     Dates: start: 2021, end: 2024

REACTIONS (2)
  - Maternal exposure during pregnancy [Unknown]
  - Postnatal growth restriction [Not Recovered/Not Resolved]

NARRATIVE: CASE EVENT DATE: 20250825
